FAERS Safety Report 12713356 (Version 1)
Quarter: 2016Q3

REPORT INFORMATION
  Report Type: Spontaneous
  Country: AT (occurrence: AT)
  Receive Date: 20160902
  Receipt Date: 20160902
  Transmission Date: 20161109
  Serious: Yes (Life-Threatening, Hospitalization)
  Sender: FDA-Public Use
  Company Number: AT-ASTRAZENECA-2016SE93631

PATIENT
  Age: 56 Year
  Sex: Female

DRUGS (13)
  1. SEROQUEL [Suspect]
     Active Substance: QUETIAPINE FUMARATE
     Dosage: 25.0MG UNKNOWN
     Route: 048
     Dates: start: 201608, end: 20160823
  2. NEUROTOP RET [Concomitant]
  3. HUMIRA [Concomitant]
     Active Substance: ADALIMUMAB
  4. HYDAL [Concomitant]
     Active Substance: HYDROMORPHONE HYDROCHLORIDE
  5. AKTIFERRIN [Concomitant]
     Active Substance: FERROUS SULFATE\SERINE
  6. ABILIFY [Concomitant]
     Active Substance: ARIPIPRAZOLE
  7. SEROQUEL [Interacting]
     Active Substance: QUETIAPINE FUMARATE
     Dosage: 100.0MG UNKNOWN
     Route: 048
  8. PANTOLOC [Concomitant]
     Active Substance: PANTOPRAZOLE SODIUM
  9. DAFLON [Concomitant]
     Active Substance: DIOSMIN\HESPERIDIN
  10. TRITTICO [Interacting]
     Active Substance: TRAZODONE HYDROCHLORIDE
     Dosage: UNKNOWN
     Route: 048
     Dates: start: 201608, end: 20160823
  11. SAROTEN [Concomitant]
     Active Substance: AMITRIPTYLINE
  12. MOGADON [Interacting]
     Active Substance: NITRAZEPAM
     Dosage: 5.0MG UNKNOWN
     Route: 048
     Dates: start: 201608, end: 20160823
  13. MAGNESIUM VERLA [Concomitant]
     Active Substance: MAGNESIUM

REACTIONS (5)
  - Epilepsy [Not Recovered/Not Resolved]
  - Intentional overdose [Not Recovered/Not Resolved]
  - Rhabdomyolysis [Not Recovered/Not Resolved]
  - Drug interaction [Unknown]
  - Coma [Not Recovered/Not Resolved]

NARRATIVE: CASE EVENT DATE: 20160823
